FAERS Safety Report 7880064-3 (Version None)
Quarter: 2011Q4

REPORT INFORMATION
  Report Type: 
  Country: None (occurrence: None)
  Receive Date: 20111101
  Receipt Date: 20111025
  Transmission Date: 20120403
  Serious: Yes (Other)
  Sender: FDA-Public Use
  Company Number: US-US-EMD SERONO, INC.-7092077

PATIENT
  Sex: Female
  Weight: 91 kg

DRUGS (3)
  1. REBIF [Suspect]
     Indication: MULTIPLE SCLEROSIS
     Route: 058
     Dates: start: 20110511
  2. VITAMIN TAB [Concomitant]
     Indication: VITAMIN SUPPLEMENTATION
  3. AMBIEN [Concomitant]
     Indication: INSOMNIA

REACTIONS (5)
  - WEIGHT DECREASED [None]
  - CHOLELITHIASIS [None]
  - PAIN [None]
  - INJECTION SITE HAEMATOMA [None]
  - FATIGUE [None]
